FAERS Safety Report 9053482 (Version 1)
Quarter: 2013Q1

REPORT INFORMATION
  Report Type: Spontaneous
  Country: RO (occurrence: RO)
  Receive Date: 20130208
  Receipt Date: 20130208
  Transmission Date: 20140127
  Serious: Yes (Hospitalization, Other)
  Sender: FDA-Public Use
  Company Number: PHHY2013RO011681

PATIENT
  Age: 25 Year
  Sex: Male
  Weight: 61 kg

DRUGS (1)
  1. EXTAVIA [Suspect]
     Indication: MULTIPLE SCLEROSIS
     Dosage: 1 DF, QOD
     Route: 058
     Dates: start: 20081212

REACTIONS (3)
  - Multiple sclerosis relapse [Recovered/Resolved]
  - Cerebellar syndrome [Unknown]
  - Pyramidal tract syndrome [Unknown]
